FAERS Safety Report 20698388 (Version 6)
Quarter: 2024Q3

REPORT INFORMATION
  Report Type: Spontaneous
  Country: DK (occurrence: DK)
  Receive Date: 20220412
  Receipt Date: 20240719
  Transmission Date: 20241016
  Serious: Yes (Hospitalization, Other)
  Sender: ORGANON
  Company Number: DK-GLAXOSMITHKLINE-DK2022GSK056931

PATIENT
  Age: 24 Year
  Sex: Female

DRUGS (4)
  1. MOMETASONE FUROATE [Suspect]
     Active Substance: MOMETASONE FUROATE
     Indication: Dermatitis
     Dosage: UNK, QW (0.1 PERCENT, EUROPEAN STEROID GROUP III, ON HANDS, NECK, AND CHEST 3-7 TIMES/WK)
     Route: 061
  2. FLUTICASONE FUROATE [Suspect]
     Active Substance: FLUTICASONE FUROATE
     Indication: Sinusitis
     Dosage: 55 UG, QD
     Route: 045
  3. BUDESONIDE [Suspect]
     Active Substance: BUDESONIDE
     Indication: Asthma
     Dosage: 1400 UG, 1D
  4. ESTROGENS [Concomitant]
     Active Substance: ESTROGENS
     Indication: Contraception
     Dosage: UNK
     Route: 048

REACTIONS (12)
  - Condition aggravated [Unknown]
  - Fatigue [Not Recovered/Not Resolved]
  - Adrenal insufficiency [Not Recovered/Not Resolved]
  - Gait inability [Recovering/Resolving]
  - Tremor [Unknown]
  - Malaise [Unknown]
  - Infection [Unknown]
  - Asthenia [Unknown]
  - Nausea [Unknown]
  - Dizziness [Unknown]
  - Weight decreased [Unknown]
  - Cold sweat [Unknown]
